FAERS Safety Report 16237846 (Version 1)
Quarter: 2019Q2

REPORT INFORMATION
  Report Type: Spontaneous
  Country: US (occurrence: US)
  Receive Date: 20190425
  Receipt Date: 20190425
  Transmission Date: 20190711
  Serious: No
  Sender: FDA-Public Use
  Company Number: US-AMGEN INC.-USASP2019063915

PATIENT
  Age: 53 Year
  Sex: Female

DRUGS (5)
  1. BUTALBITAL, ACETAMINOPHEN, AND CAFFEINE [Concomitant]
     Active Substance: ACETAMINOPHEN\BUTALBITAL\CAFFEINE
     Dosage: UNK (50 MG, 325 MG, 40 MG TAB AND TAKE THAT ONE UP TO FOUR TIMES PER DAY)
  2. AIMOVIG [Suspect]
     Active Substance: ERENUMAB-AOOE
     Dosage: 140 MILLIGRAM, QMO
     Route: 065
     Dates: start: 201903
  3. TOPAMAX [Concomitant]
     Active Substance: TOPIRAMATE
     Dosage: 200 MILLIGRAM, QD
  4. OXYCODONE [Concomitant]
     Active Substance: OXYCODONE
     Dosage: 10 MILLIGRAM (ONCE OR TWICE DAILY AS NEEDED)
  5. AIMOVIG [Suspect]
     Active Substance: ERENUMAB-AOOE
     Indication: MIGRAINE
     Dosage: 70 MILLIGRAM, QMO
     Route: 065
     Dates: start: 201811

REACTIONS (1)
  - Drug ineffective [Unknown]
